FAERS Safety Report 11078161 (Version 1)
Quarter: 2015Q2

REPORT INFORMATION
  Report Type: Spontaneous
  Country: US (occurrence: None)
  Receive Date: 20150429
  Receipt Date: 20150429
  Transmission Date: 20150821
  Serious: Yes (Disabling)
  Sender: FDA-Public Use
  Company Number: None

PATIENT
  Age: 58 Year
  Sex: Female
  Weight: 96.16 kg

DRUGS (8)
  1. PROAIR HFA [Concomitant]
     Active Substance: ALBUTEROL SULFATE
  2. NASACORT [Concomitant]
     Active Substance: TRIAMCINOLONE ACETONIDE
  3. SINGULAIR [Concomitant]
     Active Substance: MONTELUKAST SODIUM
  4. ASMANEX [Concomitant]
     Active Substance: MOMETASONE FUROATE
  5. MUCINEX [Concomitant]
     Active Substance: GUAIFENESIN
  6. LEVOFLOXACIN. [Suspect]
     Active Substance: LEVOFLOXACIN
     Indication: UPPER RESPIRATORY TRACT INFECTION
     Dosage: 1 TAB
     Route: 048
     Dates: start: 20150421, end: 20150425
  7. LEVOFLOXACIN. [Suspect]
     Active Substance: LEVOFLOXACIN
     Indication: ASTHMA
     Dosage: 1 TAB
     Route: 048
     Dates: start: 20150421, end: 20150425
  8. THEO-DUR [Concomitant]
     Active Substance: THEOPHYLLINE ANHYDROUS

REACTIONS (4)
  - Abasia [None]
  - Muscle spasms [None]
  - Back disorder [None]
  - Movement disorder [None]

NARRATIVE: CASE EVENT DATE: 20150426
